FAERS Safety Report 4381528-X (Version None)
Quarter: 2004Q2

REPORT INFORMATION
  Report Type: 
  Country: None (occurrence: None)
  Receive Date: 20040621
  Receipt Date: 20040614
  Transmission Date: 20050107
  Serious: Yes (Hospitalization)
  Sender: FDA-Public Use
  Company Number: US-MERCK-0406USA01557

PATIENT
  Age: 76 Year
  Sex: Male

DRUGS (4)
  1. ASPIRIN [Concomitant]
     Route: 065
  2. ATORVASTATIN CALCIUM [Concomitant]
     Route: 065
  3. HYDRODIURIL [Suspect]
     Indication: HYPERTENSION
     Route: 048
  4. METOPROLOL [Concomitant]
     Route: 065

REACTIONS (4)
  - CORONARY ARTERY DISEASE [None]
  - DEEP VEIN THROMBOSIS [None]
  - ISCHAEMIA [None]
  - PULMONARY EMBOLISM [None]
